FAERS Safety Report 7136071-1 (Version None)
Quarter: 2010Q4

REPORT INFORMATION
  Report Type: 
  Country: None (occurrence: None)
  Receive Date: 20101204
  Receipt Date: 20101118
  Transmission Date: 20110411
  Serious: Yes (Other)
  Sender: FDA-Public Use
  Company Number: US-BAYER-201035505NA

PATIENT

DRUGS (3)
  1. NEXAVAR [Suspect]
     Route: 048
     Dates: start: 20100902, end: 20101029
  2. NEXAVAR [Suspect]
     Route: 048
     Dates: start: 20101105
  3. NEXAVAR [Suspect]
     Route: 048
     Dates: start: 20101101

REACTIONS (3)
  - DIARRHOEA [None]
  - DRUG INEFFECTIVE [None]
  - WEIGHT DECREASED [None]
